FAERS Safety Report 22143825 (Version 2)
Quarter: 2023Q2

REPORT INFORMATION
  Report Type: Spontaneous
  Country: US (occurrence: US)
  Receive Date: 20230327
  Receipt Date: 20230402
  Transmission Date: 20230721
  Serious: Yes (Hospitalization)
  Sender: FDA-Public Use
  Company Number: US-BRISTOL-MYERS SQUIBB COMPANY-2023-042841

PATIENT
  Age: 63 Year
  Sex: Female

DRUGS (1)
  1. POMALYST [Suspect]
     Active Substance: POMALIDOMIDE
     Indication: Amyloidosis
     Dosage: FREQUENCY- TAKE 1 CAPSULE?WHOLE BY MOUTH?WITH WATER, W/ OR?W/O FOOD, AT SAME?TIME DAILY ON DAYS 1-28
     Route: 048
     Dates: start: 20221216

REACTIONS (2)
  - Localised infection [Recovering/Resolving]
  - Off label use [Unknown]

NARRATIVE: CASE EVENT DATE: 20230322
